FAERS Safety Report 9446645 (Version 1)
Quarter: 2013Q3

REPORT INFORMATION
  Report Type: Spontaneous
  Country: US (occurrence: US)
  Receive Date: 20130807
  Receipt Date: 20130807
  Transmission Date: 20140515
  Serious: No
  Sender: FDA-Public Use
  Company Number: US-AMGEN-USASP2013052806

PATIENT
  Age: 68 Year
  Sex: Male

DRUGS (1)
  1. ENBREL [Suspect]
     Indication: PSORIATIC ARTHROPATHY
     Dosage: 50 MG, ONCE A WEEK
     Route: 065
     Dates: start: 20030407

REACTIONS (4)
  - Arthralgia [Recovered/Resolved]
  - Joint range of motion decreased [Not Recovered/Not Resolved]
  - Musculoskeletal pain [Not Recovered/Not Resolved]
  - Chondropathy [Not Recovered/Not Resolved]
